FAERS Safety Report 9206752 (Version 2)
Quarter: 2013Q2

REPORT INFORMATION
  Report Type: Spontaneous
  Country: US (occurrence: US)
  Receive Date: 20130403
  Receipt Date: 20130507
  Transmission Date: 20140414
  Serious: Yes (Other)
  Sender: FDA-Public Use
  Company Number: US-AMGEN-USASP2013022443

PATIENT
  Age: 56 Year
  Sex: Female
  Weight: 54.42 kg

DRUGS (2)
  1. ENBREL [Suspect]
     Indication: PSORIASIS
     Dosage: 50 MG, QWK
     Route: 058
     Dates: start: 20120203
  2. METHOTREXATE [Concomitant]
     Dosage: 75 MG, QWK
     Route: 048
     Dates: start: 201210

REACTIONS (1)
  - Melaena [Recovered/Resolved]
